FAERS Safety Report 7256465-3 (Version None)
Quarter: 2011Q1

REPORT INFORMATION
  Report Type: 
  Country: None (occurrence: None)
  Receive Date: 20110129
  Receipt Date: 20100817
  Transmission Date: 20110831
  Serious: Yes (Other)
  Sender: FDA-Public Use
  Company Number: US-ABBOTT-10P-163-0661919-00

PATIENT
  Sex: Female
  Weight: 90.346 kg

DRUGS (4)
  1. HUMIRA [Suspect]
     Route: 058
     Dates: start: 20060101
  2. HUMIRA [Suspect]
     Route: 058
     Dates: start: 20090901, end: 20100501
  3. HUMIRA [Suspect]
     Indication: RHEUMATOID ARTHRITIS
     Route: 058
     Dates: start: 20040101, end: 20060101
  4. HUMIRA [Suspect]
     Route: 058
     Dates: end: 20090801

REACTIONS (7)
  - HAEMOPHILUS INFECTION [None]
  - UPPER AIRWAY OBSTRUCTION [None]
  - SLUGGISHNESS [None]
  - STAPHYLOCOCCAL INFECTION [None]
  - SINUSITIS [None]
  - PYREXIA [None]
  - DYSPNOEA [None]
